FAERS Safety Report 5961771-6 (Version None)
Quarter: 2008Q4

REPORT INFORMATION
  Report Type: 
  Country: None (occurrence: None)
  Receive Date: 20081121
  Receipt Date: 20081117
  Transmission Date: 20090506
  Serious: Yes (Disabling)
  Sender: FDA-Public Use
  Company Number: US-MERCK-0808USA00260

PATIENT
  Age: 14 Year
  Sex: Male
  Weight: 68 kg

DRUGS (1)
  1. SINGULAIR [Suspect]
     Indication: ASTHMA
     Route: 048
     Dates: start: 20040818, end: 20080414

REACTIONS (2)
  - ABNORMAL BEHAVIOUR [None]
  - MOOD ALTERED [None]
